FAERS Safety Report 4903631-5 (Version None)
Quarter: 2006Q1

REPORT INFORMATION
  Report Type: 
  Country: None (occurrence: None)
  Receive Date: 20060203
  Receipt Date: 20060120
  Transmission Date: 20060701
  Serious: Yes (Death)
  Sender: FDA-Public Use
  Company Number: DE-2006-001570

PATIENT
  Sex: 0

DRUGS (9)
  1. FLUDARA [Suspect]
     Indication: ALLOGENIC BONE MARROW TRANSPLANTATION THERAPY
     Dosage: 150MG/M2, INTRAVENOUS
     Route: 042
  2. TREOSULFAN (TREOSULFAN) [Suspect]
     Indication: STEM CELL TRANSPLANT
  3. IMMUNOSUPPRESSIVE AGENTS [Suspect]
     Indication: STEM CELL TRANSPLANT
  4. CYCLOSPORINE [Concomitant]
  5. METHOTREXATE (METOTHREXATE [Concomitant]
  6. CIPROFLOXACIN [Concomitant]
  7. ANTIFUGALS [Concomitant]
  8. ACYCLOVIR [Concomitant]
  9. ANTIBIOTICS [Concomitant]

REACTIONS (1)
  - CEREBRAL HAEMORRHAGE [None]
